FAERS Safety Report 6130510-0 (Version None)
Quarter: 2009Q1

REPORT INFORMATION
  Report Type: 
  Country: None (occurrence: None)
  Receive Date: 20090323
  Receipt Date: 20090305
  Transmission Date: 20090719
  Serious: Yes (Hospitalization)
  Sender: FDA-Public Use
  Company Number: 8043707

PATIENT
  Age: 75 Year
  Sex: Female

DRUGS (15)
  1. KEPPRA [Suspect]
     Dosage: 500 MG
  2. TEMODAR [Suspect]
     Indication: GLIOBLASTOMA MULTIFORME
     Dosage: 75 MG/KG /D PO
     Route: 048
     Dates: start: 20080201, end: 20080401
  3. TEMODAR [Suspect]
     Indication: GLIOBLASTOMA MULTIFORME
     Dosage: PO
     Route: 048
     Dates: start: 20080508, end: 20080529
  4. TEMODAR [Suspect]
     Indication: GLIOBLASTOMA MULTIFORME
     Dosage: PO
     Route: 048
     Dates: start: 20081223, end: 20090112
  5. DILANTIN [Suspect]
     Dosage: 200 MG/D PO
     Route: 048
  6. COUMADIN [Concomitant]
  7. PEPCID [Concomitant]
  8. MEGACE [Concomitant]
  9. SYNTHROID [Concomitant]
  10. ZANTAC [Concomitant]
  11. MICRO-K [Concomitant]
  12. COMPAZINE [Concomitant]
  13. VITAMIN B1 TAB [Concomitant]
  14. COZAAR [Concomitant]
  15. CALCIUM [Concomitant]

REACTIONS (7)
  - ACTIVITIES OF DAILY LIVING IMPAIRED [None]
  - ASTHENIA [None]
  - DECREASED APPETITE [None]
  - FALL [None]
  - INTERNATIONAL NORMALISED RATIO INCREASED [None]
  - PANCYTOPENIA [None]
  - WEIGHT DECREASED [None]
